FAERS Safety Report 15333177 (Version 7)
Quarter: 2018Q4

REPORT INFORMATION
  Report Type: Report from Study
  Country: US (occurrence: US)
  Receive Date: 20180830
  Receipt Date: 20181122
  Transmission Date: 20190204
  Serious: Yes (Hospitalization)
  Sender: FDA-Public Use
  Company Number: US-ROCHE-2175615

PATIENT
  Age: 70 Year
  Sex: Female
  Weight: 59.1 kg

DRUGS (28)
  1. BEVACIZUMAB. [Suspect]
     Active Substance: BEVACIZUMAB
     Indication: OVARIAN CANCER
     Dosage: ON 07/AUG/2018, SHE RECEIVED THE MOST RECENT DOSE OF BEVACIZUMAB (872MG) PRIOR TO EVENT ONSET.
     Route: 042
     Dates: start: 20180807
  2. BENADRYL [Concomitant]
     Active Substance: DIPHENHYDRAMINE HYDROCHLORIDE
     Route: 065
     Dates: start: 20180807, end: 20180807
  3. DECADRON [Concomitant]
     Active Substance: DEXAMETHASONE
     Indication: NAUSEA
     Route: 042
     Dates: start: 20180807, end: 20180807
  4. SUSTOL [Concomitant]
     Active Substance: GRANISETRON
     Indication: VOMITING
  5. CALCIUM CITRATE WITH VITAMIN D3 [Concomitant]
     Route: 065
     Dates: start: 2008
  6. FIBER COMPLETE [Concomitant]
     Route: 065
     Dates: start: 2008
  7. COMPAZINE [Concomitant]
     Active Substance: PROCHLORPERAZINE MALEATE
     Indication: NAUSEA
     Route: 065
     Dates: start: 20180717
  8. CINVANTI [Concomitant]
     Active Substance: APREPITANT
     Route: 065
     Dates: start: 20180807, end: 20180807
  9. TYLENOL PM [Concomitant]
     Active Substance: ACETAMINOPHEN\DIPHENHYDRAMINE
     Indication: INSOMNIA
     Route: 065
     Dates: start: 20180808, end: 20180812
  10. VIMPAT [Concomitant]
     Active Substance: LACOSAMIDE
     Route: 065
     Dates: start: 20170401
  11. BENADRYL [Concomitant]
     Active Substance: DIPHENHYDRAMINE HYDROCHLORIDE
     Indication: CONTRAST MEDIA ALLERGY
     Route: 065
     Dates: start: 20180601
  12. COMPAZINE [Concomitant]
     Active Substance: PROCHLORPERAZINE MALEATE
     Indication: VOMITING
  13. MIRALAX [Concomitant]
     Active Substance: POLYETHYLENE GLYCOL 3350
     Indication: CONSTIPATION
     Route: 065
     Dates: start: 20180807
  14. MELATONIN [Concomitant]
     Active Substance: MELATONIN
     Indication: INSOMNIA
     Route: 065
     Dates: start: 20180812, end: 20180820
  15. ATEZOLIZUMAB. [Suspect]
     Active Substance: ATEZOLIZUMAB
     Indication: OVARIAN CANCER
     Dosage: ON 07/AUG/2018, SHE RECEIVED THE MOST RECENT DOSE OF ATEZOLIZUMAB PRIOR TO EVENT ONSET.
     Route: 042
     Dates: start: 20180717
  16. IMODIUM AD [Concomitant]
     Active Substance: LOPERAMIDE HYDROCHLORIDE
     Indication: DIARRHOEA
     Route: 065
     Dates: start: 2018
  17. SUSTOL [Concomitant]
     Active Substance: GRANISETRON
     Indication: NAUSEA
     Route: 065
     Dates: start: 20180807, end: 20180807
  18. AMBIEN [Concomitant]
     Active Substance: ZOLPIDEM TARTRATE
     Indication: INSOMNIA
     Route: 065
     Dates: start: 20110821
  19. PACLITAXEL. [Suspect]
     Active Substance: PACLITAXEL
     Indication: OVARIAN CANCER
     Dosage: ON 07/AUG/2018, SHE RECEIVED THE MOST RECENT DOSE OF PACLITAXEL (175MG AND 285MG) PRIOR TO EVENT ONS
     Route: 042
     Dates: start: 20180717
  20. FISH OIL [Concomitant]
     Active Substance: FISH OIL
     Route: 065
     Dates: start: 2008
  21. PEPCID (UNITED STATES) [Concomitant]
     Route: 065
     Dates: start: 20180807, end: 20180807
  22. CARBOPLATIN. [Suspect]
     Active Substance: CARBOPLATIN
     Indication: OVARIAN CANCER
     Dosage: CARBOPLATIN AT A DOSE TO ACHIEVE A TARGET AREA UNDER THE CURVE (AUC) OF 6 MILLIGRAMS PER MILLILITER*
     Route: 042
     Dates: start: 20180717
  23. OMEGA 3-6-9 (FISH OIL) [Concomitant]
     Route: 065
     Dates: start: 2008
  24. TYLENOL [Concomitant]
     Active Substance: ACETAMINOPHEN
     Indication: ARTHRITIS
     Route: 065
     Dates: start: 2016
  25. TYLENOL [Concomitant]
     Active Substance: ACETAMINOPHEN
     Indication: PAIN
  26. ZARXIO [Concomitant]
     Active Substance: FILGRASTIM-SNDZ
     Indication: NEUTROPENIA
     Route: 065
     Dates: start: 20180821, end: 20180826
  27. ZARXIO [Concomitant]
     Active Substance: FILGRASTIM-SNDZ
     Route: 065
     Dates: start: 20180824, end: 20180824
  28. PREDNISONE. [Concomitant]
     Active Substance: PREDNISONE
     Route: 065
     Dates: start: 20180807

REACTIONS (1)
  - Systemic inflammatory response syndrome [Recovered/Resolved]

NARRATIVE: CASE EVENT DATE: 20180824
